FAERS Safety Report 11202783 (Version 1)
Quarter: 2015Q2

REPORT INFORMATION
  Report Type: Spontaneous
  Country: US (occurrence: None)
  Receive Date: 20150617
  Receipt Date: 20150617
  Transmission Date: 20150821
  Serious: Yes (Disabling)
  Sender: FDA-Public Use
  Company Number: None

PATIENT
  Age: 30 Year
  Sex: Female
  Weight: 61.24 kg

DRUGS (4)
  1. SULFAMETHOXAZOLE [Concomitant]
     Active Substance: SULFAMETHOXAZOLE
  2. CEPHALON [Concomitant]
  3. MUPIROCIN. [Concomitant]
     Active Substance: MUPIROCIN
  4. JUNEL FE 1/20 [Suspect]
     Active Substance: ETHINYL ESTRADIOL\NORETHINDRONE ACETATE
     Indication: CONTRACEPTION
     Route: 048

REACTIONS (5)
  - Erythema nodosum [None]
  - Pain [None]
  - Joint stiffness [None]
  - Frustration [None]
  - Myalgia [None]

NARRATIVE: CASE EVENT DATE: 20150521
